FAERS Safety Report 15017711 (Version 1)
Quarter: 2018Q2

REPORT INFORMATION
  Report Type: Spontaneous
  Country: US (occurrence: US)
  Receive Date: 20180531
  Receipt Date: 20180531
  Transmission Date: 20180711
  Serious: Yes (Other)
  Sender: FDA-Public Use
  Company Number: None

PATIENT
  Age: 66 Year
  Sex: Female
  Weight: 155 kg

DRUGS (12)
  1. HYALURONIC ACID [Concomitant]
     Active Substance: HYALURONIC ACID
  2. CALCIUM [Concomitant]
     Active Substance: CALCIUM
  3. METHOCARBAM [Concomitant]
  4. VALIUM [Concomitant]
     Active Substance: DIAZEPAM
  5. MULTI VITAMIN [Concomitant]
     Active Substance: VITAMINS
  6. BIOTIN [Concomitant]
     Active Substance: BIOTIN
  7. MULTI VEGETABLE TABLET [Concomitant]
  8. ANTI-DIARRHEA TAB [Concomitant]
  9. DICLOFENAC 75 MG [Suspect]
     Active Substance: DICLOFENAC
     Indication: ARTHRALGIA
     Dosage: ?          QUANTITY:1 TABLET(S);?
     Route: 048
     Dates: start: 20180515, end: 20180526
  10. TUMERIC [Concomitant]
     Active Substance: HERBALS\TURMERIC
  11. ST. JOHNS WART TART CHERRY [Concomitant]
  12. ANTIOXIDENTS [Concomitant]

REACTIONS (3)
  - Haematochezia [None]
  - Diarrhoea [None]
  - Abdominal pain [None]

NARRATIVE: CASE EVENT DATE: 20180525
